FAERS Safety Report 24206591 (Version 1)
Quarter: 2024Q3

REPORT INFORMATION
  Report Type: Spontaneous
  Country: TR (occurrence: TR)
  Receive Date: 20240813
  Receipt Date: 20240813
  Transmission Date: 20241017
  Serious: Yes (Hospitalization, Other)
  Sender: INSUD PHARMA
  Company Number: TR-INSUD PHARMA-2408TR06333

PATIENT

DRUGS (4)
  1. FOSFOMYCIN [Suspect]
     Active Substance: FOSFOMYCIN
     Indication: Urinary tract infection
     Dosage: UNK UNK, SINGLE
     Route: 065
  2. INDAPAMIDE\PERINDOPRIL [Suspect]
     Active Substance: INDAPAMIDE\PERINDOPRIL
     Indication: Hypertension
     Dosage: UNK
     Route: 065
  3. HYDROCHLOROTHIAZIDE\VALSARTAN [Suspect]
     Active Substance: HYDROCHLOROTHIAZIDE\VALSARTAN
     Indication: Hypertension
     Dosage: UNK
     Route: 065
  4. CEFUROXIME AXETIL [Suspect]
     Active Substance: CEFUROXIME AXETIL
     Indication: Urinary tract infection
     Dosage: UNK
     Route: 065

REACTIONS (18)
  - SJS-TEN overlap [Recovered/Resolved]
  - Systemic lupus erythematosus [Recovered/Resolved]
  - Nephritis [Recovered/Resolved]
  - Glomerulosclerosis [Recovered/Resolved]
  - Haemolytic anaemia [Recovered/Resolved]
  - Erythema [Recovered/Resolved]
  - Pain of skin [Recovered/Resolved]
  - Oral pain [Recovered/Resolved]
  - Oral mucosa erosion [Recovered/Resolved]
  - Nikolsky^s sign [Recovered/Resolved]
  - Macule [Recovered/Resolved]
  - Mucosa vesicle [Recovered/Resolved]
  - Mucosal erosion [Recovered/Resolved]
  - Blister [Recovered/Resolved]
  - Secretion discharge [Recovered/Resolved]
  - Target skin lesion [Recovered/Resolved]
  - Skin exfoliation [Recovered/Resolved]
  - Apoptosis [Recovered/Resolved]
